FAERS Safety Report 7201624-9 (Version None)
Quarter: 2010Q4

REPORT INFORMATION
  Report Type: 
  Country: None (occurrence: None)
  Receive Date: 20101229
  Receipt Date: 20101217
  Transmission Date: 20110411
  Serious: Yes (Other)
  Sender: FDA-Public Use
  Company Number: JP-ROCHE-686693

PATIENT
  Sex: Male
  Weight: 34 kg

DRUGS (6)
  1. AVASTIN [Suspect]
     Indication: LUNG ADENOCARCINOMA METASTATIC
     Dosage: DISCONTINUED
     Route: 041
     Dates: start: 20091222, end: 20100203
  2. PARAPLATIN [Suspect]
     Indication: LUNG ADENOCARCINOMA METASTATIC
     Dosage: DISCONTINUED, NOTE: UNCERTAINTY
     Route: 041
     Dates: start: 20091222, end: 20100203
  3. TAXOL [Suspect]
     Indication: LUNG ADENOCARCINOMA METASTATIC
     Dosage: DISCONTINUED, NOTE: UNCERTAINTY
     Route: 041
     Dates: start: 20091222, end: 20100203
  4. OPIUM [Suspect]
     Dosage: DRUG: OPIUM ALKALOIDS PREPARATIONS, DOSE FORM AND NOTE: UNCERTAINTY
     Route: 065
  5. RAMELTEON [Concomitant]
     Dosage: DRUG: RAMOSETRON HYDROCHLORIDE, NOTE: UNCERTAINTY
     Route: 041
     Dates: start: 20091222, end: 20100203
  6. ZANTAC [Concomitant]
     Dosage: DRUG: RANITIDINE HYDROCHLORIDE, NOTE: UNCERTAINTY
     Route: 041
     Dates: start: 20091222, end: 20100203

REACTIONS (4)
  - DEPRESSION [None]
  - HYPERTENSION [None]
  - PNEUMATOSIS INTESTINALIS [None]
  - PNEUMOPERITONEUM [None]
